FAERS Safety Report 10391487 (Version 3)
Quarter: 2015Q3

REPORT INFORMATION
  Report Type: Not Available
  Country: DK (occurrence: DK)
  Receive Date: 20140818
  Receipt Date: 20150908
  Transmission Date: 20151125
  Serious: Yes (Hospitalization)
  Sender: FDA-Public Use
  Company Number: DK-MUNDIPHARMA DS AND PHARMACOVIGILANCE-GBR-2014-0020244

PATIENT
  Age: 95 Year
  Sex: Female

DRUGS (8)
  1. LOSARTAN POTASSIUM. [Concomitant]
     Active Substance: LOSARTAN POTASSIUM
     Dosage: UNK
     Dates: start: 2014, end: 20140624
  2. CONTALGIN UNO DEPOTKAPSLER [Suspect]
     Active Substance: MORPHINE SULFATE
     Indication: PROCEDURAL PAIN
     Dosage: 5 MG, BID
     Route: 048
     Dates: start: 20140609, end: 20140624
  3. IMOZOP [Concomitant]
     Active Substance: ZOPICLONE
  4. CENTYL MITE W/POTASSIUM CHLORIDE [Concomitant]
  5. FOLIMET [Concomitant]
     Dosage: UNK
     Dates: start: 20140612
  6. OXAPAX [Concomitant]
     Active Substance: OXAZEPAM
     Dosage: UNK
     Dates: start: 201405, end: 20140624
  7. PARACETAMOL [Concomitant]
     Active Substance: ACETAMINOPHEN
     Dosage: UNK
     Dates: start: 2007, end: 20140624
  8. TOILAX [Concomitant]
     Dosage: UNK
     Dates: start: 20140602, end: 20140624

REACTIONS (5)
  - Delirium [Unknown]
  - Somnolence [Not Recovered/Not Resolved]
  - Hypophagia [Not Recovered/Not Resolved]
  - Fluid intake reduced [Not Recovered/Not Resolved]
  - Dehydration [Not Recovered/Not Resolved]

NARRATIVE: CASE EVENT DATE: 201406
